FAERS Safety Report 4417560-7 (Version None)
Quarter: 2004Q3

REPORT INFORMATION
  Report Type: 
  Country: None (occurrence: None)
  Receive Date: 20040804
  Receipt Date: 20040730
  Transmission Date: 20050211
  Serious: Yes (Death)
  Sender: FDA-Public Use
  Company Number: A-CH2004-06999

PATIENT
  Age: 71 Year
  Sex: Male

DRUGS (5)
  1. TRACLEER [Suspect]
     Indication: PULMONARY HYPERTENSION
     Dosage: ORAL
     Route: 048
     Dates: start: 20030901
  2. BUMETANIDE [Concomitant]
  3. VASTAREL ^BIOPHARMA^ TRIMETAZIDINE HYDROCHLORIDE) [Concomitant]
  4. NITROGLYCERIN [Concomitant]
  5. OMIX (TAMSULOSIN HYDROCHLORIDE) [Concomitant]

REACTIONS (2)
  - FIBROSIS [None]
  - OFF LABEL USE [None]
